FAERS Safety Report 8000184-2 (Version None)
Quarter: 2011Q4

REPORT INFORMATION
  Report Type: 
  Country: None (occurrence: None)
  Receive Date: 20111222
  Receipt Date: 20111212
  Transmission Date: 20120403
  Serious: Yes (Hospitalization, Other)
  Sender: FDA-Public Use
  Company Number: US-ELI_LILLY_AND_COMPANY-US201112004650

PATIENT
  Age: 64 Year
  Sex: Female

DRUGS (9)
  1. FOLIC ACID [Concomitant]
  2. ZOLOFT [Concomitant]
  3. LEVOTHYROXINE SODIUM [Concomitant]
  4. CYMBALTA [Suspect]
     Indication: FIBROMYALGIA
     Dosage: 60 MG, QD
  5. MULTI-VITAMIN [Concomitant]
  6. ESTRACE [Concomitant]
     Route: 067
  7. METHOTREXATE [Concomitant]
  8. XANAX [Concomitant]
     Dosage: UNK, PRN
  9. PERCOCET [Concomitant]

REACTIONS (15)
  - HEPATITIS [None]
  - ALANINE AMINOTRANSFERASE INCREASED [None]
  - TEMPERATURE INTOLERANCE [None]
  - NAUSEA [None]
  - VOMITING [None]
  - ASPARTATE AMINOTRANSFERASE INCREASED [None]
  - ERYTHEMA [None]
  - ELECTROLYTE IMBALANCE [None]
  - DYSGEUSIA [None]
  - DRUG HYPERSENSITIVITY [None]
  - PRURITUS [None]
  - DEHYDRATION [None]
  - HAEMATOCHEZIA [None]
  - DIARRHOEA [None]
  - POST PROCEDURAL HAEMORRHAGE [None]
